FAERS Safety Report 6163943-7 (Version None)
Quarter: 2009Q2

REPORT INFORMATION
  Report Type: 
  Country: None (occurrence: None)
  Receive Date: 20090422
  Receipt Date: 20090415
  Transmission Date: 20091009
  Serious: Yes (Hospitalization)
  Sender: FDA-Public Use
  Company Number: DE-ABBOTT-04P-062-0283502-00

PATIENT
  Sex: Female
  Weight: 49 kg

DRUGS (8)
  1. HUMIRA [Suspect]
     Indication: RHEUMATOID ARTHRITIS
     Route: 058
     Dates: start: 20031212
  2. SORTIS [Concomitant]
     Indication: HYPERLIPIDAEMIA
  3. NEXIUM [Concomitant]
     Indication: PROPHYLAXIS AGAINST GASTROINTESTINAL ULCER
  4. IBUPROFEN [Concomitant]
     Indication: ARTHRALGIA
     Dates: start: 20041201
  5. TILIDIN DROPS [Concomitant]
     Indication: ARTHRALGIA
     Dates: start: 20041201
  6. KALIUM CHLORATUM STREULI [Concomitant]
     Indication: HYPOKALAEMIA
  7. DIUCOMB [Concomitant]
     Indication: HYPERTONIA
  8. HUMIRA [Concomitant]
     Dates: start: 20031020

REACTIONS (1)
  - HYPOTENSION [None]
